FAERS Safety Report 5157043-2 (Version None)
Quarter: 2006Q4

REPORT INFORMATION
  Report Type: 
  Country: None (occurrence: None)
  Receive Date: 20061127
  Receipt Date: 20061116
  Transmission Date: 20070319
  Serious: Yes (Hospitalization)
  Sender: FDA-Public Use
  Company Number: FR-JNJFOC-20061104211

PATIENT
  Age: 93 Year
  Sex: Male

DRUGS (6)
  1. RISPERDAL [Suspect]
     Indication: AGITATION
     Route: 048
  2. ATHYMIL [Concomitant]
     Route: 065
  3. TIAPRIDAL [Concomitant]
     Route: 065
  4. TENORMIN [Concomitant]
     Route: 065
  5. FLODIL [Concomitant]
     Route: 065
  6. AMLOR [Concomitant]
     Route: 065

REACTIONS (3)
  - COMA [None]
  - HYPOTENSION [None]
  - SEDATION [None]
